FAERS Safety Report 8941664 (Version 1)
Quarter: 2012Q4

REPORT INFORMATION
  Report Type: 
  Country: GB (occurrence: GB)
  Receive Date: 20121203
  Receipt Date: 20121203
  Transmission Date: 20130627
  Serious: Yes (Other)
  Sender: FDA-Public Use
  Company Number: CHNY2012GB000621

PATIENT
  Sex: Male

DRUGS (1)
  1. VOLTAROL [Suspect]
     Indication: BACK PAIN
     Dosage: 1 DF, (one tablet every 4-6 hours)
     Route: 048
     Dates: start: 20121101, end: 20121101

REACTIONS (8)
  - Feeling abnormal [Unknown]
  - Burning sensation [Recovered/Resolved]
  - Pallor [Recovered/Resolved]
  - Hyperhidrosis [Recovered/Resolved]
  - Paraesthesia [Recovered/Resolved]
  - Diarrhoea [Recovered/Resolved]
  - Dizziness [Recovered/Resolved]
  - Erythema [Recovered/Resolved]
